FAERS Safety Report 12247882 (Version 5)
Quarter: 2016Q3

REPORT INFORMATION
  Report Type: Report from Study
  Country: JP (occurrence: JP)
  Receive Date: 20160408
  Receipt Date: 20160721
  Transmission Date: 20161109
  Serious: Yes (Hospitalization, Other)
  Sender: FDA-Public Use
  Company Number: JP-BRISTOL-MYERS SQUIBB COMPANY-BMS-2016-025820

PATIENT
  Age: 66 Year
  Sex: Male
  Weight: 70 kg

DRUGS (21)
  1. BESACOLIN [Concomitant]
     Active Substance: BETHANECHOL CHLORIDE
     Indication: BENIGN PROSTATIC HYPERPLASIA
  2. LUPRAC [Concomitant]
     Active Substance: TORSEMIDE
     Indication: OEDEMA DUE TO CARDIAC DISEASE
     Dosage: 8 MG, QD
     Route: 048
     Dates: start: 20140615
  3. FEBURIC [Concomitant]
     Active Substance: FEBUXOSTAT
     Indication: GOUT
     Dosage: 10 MG, QD
     Route: 048
  4. MUCOSTA [Concomitant]
     Active Substance: REBAMIPIDE
     Indication: PROPHYLAXIS
     Dosage: 300 MG, QD
     Route: 048
     Dates: start: 20140214
  5. COVERSYL                           /00790702/ [Concomitant]
     Active Substance: PERINDOPRIL
     Indication: HYPERTENSION
     Dosage: UNK
     Route: 048
     Dates: start: 20140624
  6. APIXABAN [Suspect]
     Active Substance: APIXABAN
     Indication: CEREBROVASCULAR ACCIDENT PROPHYLAXIS
     Dosage: 5 MG, BID
     Route: 048
     Dates: start: 20140114, end: 20140423
  7. APIXABAN [Suspect]
     Active Substance: APIXABAN
     Dosage: 5 MG, BID
     Route: 048
     Dates: start: 20150910
  8. TAKEPRON [Concomitant]
     Active Substance: LANSOPRAZOLE
     Indication: PROPHYLAXIS
     Dosage: 15 MG, QD
     Route: 048
     Dates: end: 20150123
  9. FERRUM                             /00023501/ [Concomitant]
     Indication: IRON DEFICIENCY ANAEMIA
     Dosage: 1 UNIT, QD
     Route: 048
     Dates: start: 20140617, end: 20150522
  10. FINIBAX [Concomitant]
     Active Substance: DORIPENEM MONOHYDRATE
     Indication: PYELONEPHRITIS ACUTE
     Dosage: 0.5 G, QD
     Route: 065
  11. APIXABAN [Suspect]
     Active Substance: APIXABAN
     Dosage: 5 MG, BID
     Route: 048
     Dates: start: 20140424
  12. MAINTATE [Concomitant]
     Active Substance: BISOPROLOL FUMARATE
     Indication: ATRIAL FIBRILLATION
     Dosage: 2.5 MG, QD
     Route: 048
     Dates: start: 20140417
  13. LASIX [Concomitant]
     Active Substance: FUROSEMIDE
     Indication: PRODUCT USED FOR UNKNOWN INDICATION
     Route: 065
  14. BESACOLIN [Concomitant]
     Active Substance: BETHANECHOL CHLORIDE
     Indication: PROPHYLAXIS
     Dosage: 30 MG, QD
     Route: 048
     Dates: end: 20150930
  15. ADONA                              /00056903/ [Concomitant]
     Active Substance: CARBAZOCHROME SODIUM SULFONATE
     Indication: PRODUCT USED FOR UNKNOWN INDICATION
     Dosage: UNK
     Route: 065
     Dates: end: 20150113
  16. FEBURIC [Concomitant]
     Active Substance: FEBUXOSTAT
     Indication: HYPERURICAEMIA
  17. TAKEPRON [Concomitant]
     Active Substance: LANSOPRAZOLE
     Dosage: 30 MG, QD
     Route: 048
     Dates: start: 20150123
  18. AMIODARONE HYDROCHLORIDE. [Concomitant]
     Active Substance: AMIODARONE HYDROCHLORIDE
     Indication: ATRIAL TACHYCARDIA
     Dosage: 200 MG, QD
     Route: 048
     Dates: start: 20140530
  19. FESIN                              /00023550/ [Concomitant]
     Active Substance: IRON SUCROSE
     Indication: IRON DEFICIENCY ANAEMIA
     Dosage: 40 MG, QD
     Route: 065
  20. ASPIRIN                            /00002701/ [Concomitant]
     Active Substance: ASPIRIN
     Indication: ARTERIOSCLEROSIS CORONARY ARTERY
     Dosage: 100 MG, QD
     Route: 048
  21. FLIVAS [Concomitant]
     Active Substance: NAFTOPIDIL
     Indication: BENIGN PROSTATIC HYPERPLASIA
     Dosage: 75 MG, QD
     Route: 065

REACTIONS (9)
  - Anaemia [Recovering/Resolving]
  - Pyelonephritis acute [Recovering/Resolving]
  - Enterocolitis [Recovered/Resolved]
  - Surgery [Unknown]
  - Gastrointestinal haemorrhage [Recovered/Resolved]
  - Cardiac failure congestive [Recovered/Resolved]
  - Haemoptysis [Recovering/Resolving]
  - Haematuria [Recovered/Resolved]
  - Cardiac ablation [Unknown]

NARRATIVE: CASE EVENT DATE: 20140423
